FAERS Safety Report 4673970-4 (Version None)
Quarter: 2005Q2

REPORT INFORMATION
  Report Type: 
  Country: None (occurrence: None)
  Receive Date: 20050524
  Receipt Date: 20050512
  Transmission Date: 20051028
  Serious: Yes (Disabling)
  Sender: FDA-Public Use
  Company Number: 2005074299

PATIENT
  Age: 62 Year
  Sex: Male
  Weight: 64 kg

DRUGS (1)
  1. TRANEXAMIC ACID (TRANEXAMIC ACID) [Suspect]
     Indication: HAEMORRHAGE
     Dosage: 1280 MG (1 IN 1 D) INTRAVENOUS
     Route: 042
     Dates: start: 20041215, end: 20041215

REACTIONS (1)
  - CEREBROVASCULAR ACCIDENT [None]
